FAERS Safety Report 5173154-X (Version None)
Quarter: 2006Q4

REPORT INFORMATION
  Report Type: 
  Country: None (occurrence: None)
  Receive Date: 20061207
  Receipt Date: 20061207
  Transmission Date: 20070319
  Serious: Yes (Life-Threatening)
  Sender: FDA-Public Use
  Company Number: None

PATIENT
  Age: 72 Year
  Sex: Female

DRUGS (5)
  1. LIDOCAINE AND EPINEPHRINE [Suspect]
     Indication: NERVE BLOCK
     Dosage: APPROX 15ML ONCE OTHER
     Dates: start: 20060629, end: 20060629
  2. ROPIVACAINE [Suspect]
     Indication: NERVE BLOCK
     Dosage: APPROX 15ML ONCE OTHER
     Dates: start: 20060629, end: 20060629
  3. LISINOPRIL [Concomitant]
  4. FENTANYL [Concomitant]
  5. MIDAZOLAM HYDROCHLORIDE [Concomitant]

REACTIONS (7)
  - ANAESTHETIC COMPLICATION [None]
  - CONVULSION [None]
  - ELECTROENCEPHALOGRAM ABNORMAL [None]
  - HYPOTENSION [None]
  - INCORRECT ROUTE OF DRUG ADMINISTRATION [None]
  - LOSS OF CONSCIOUSNESS [None]
  - POST PROCEDURAL COMPLICATION [None]
